FAERS Safety Report 8921335 (Version 2)
Quarter: 2012Q4

REPORT INFORMATION
  Report Type: 
  Country: US (occurrence: US)
  Receive Date: 20121121
  Receipt Date: 20121210
  Transmission Date: 20130627
  Serious: Yes (Hospitalization)
  Sender: FDA-Public Use
  Company Number: US-GILEAD-2012-0064946

PATIENT
  Sex: Female

DRUGS (2)
  1. LETAIRIS [Suspect]
     Indication: PULMONARY ARTERIAL HYPERTENSION
     Dosage: 5 mg, QD
     Route: 048
     Dates: start: 20120831
  2. ADCIRCA [Concomitant]

REACTIONS (2)
  - Diarrhoea [Recovered/Resolved]
  - Colitis [Recovered/Resolved]
